FAERS Safety Report 16913530 (Version 1)
Quarter: 2019Q4

REPORT INFORMATION
  Report Type: Spontaneous
  Country: US (occurrence: US)
  Receive Date: 20190821
  Receipt Date: 20190821
  Transmission Date: 20200122
  Serious: Yes (Other)
  Sender: FDA-Public Use
  Company Number: None

PATIENT
  Age: 65 Year
  Sex: Female
  Weight: 78.47 kg

DRUGS (12)
  1. MAGNESIUM LACTATE [Concomitant]
     Active Substance: MAGNESIUM LACTATE
  2. MONTELEUCAS [Concomitant]
  3. SPIRAVA [Concomitant]
  4. CETERIZINE [Concomitant]
     Active Substance: CETIRIZINE HYDROCHLORIDE
  5. WIXELA INHUB [Suspect]
     Active Substance: FLUTICASONE PROPIONATE\SALMETEROL XINAFOATE
     Indication: ASTHMA
     Dosage: ?          QUANTITY:60 TOT - TOTAL;?
     Route: 055
     Dates: start: 20190813, end: 20190814
  6. COD LIVER OIL CAPSULES [Concomitant]
  7. NAPROXEN. [Concomitant]
     Active Substance: NAPROXEN
  8. METHYLPRED (FOR A FEW DAYS) [Concomitant]
  9. PROGESTERONE. [Concomitant]
     Active Substance: PROGESTERONE
  10. PANTOPRAZOLE [Concomitant]
     Active Substance: PANTOPRAZOLE
  11. VITAMINS A+D [Concomitant]
  12. LOSARTAN. [Concomitant]
     Active Substance: LOSARTAN

REACTIONS (4)
  - Oropharyngeal pain [None]
  - Headache [None]
  - Upper respiratory tract inflammation [None]
  - Upper respiratory tract congestion [None]

NARRATIVE: CASE EVENT DATE: 20190814
